FAERS Safety Report 6247950-1 (Version None)
Quarter: 2009Q2

REPORT INFORMATION
  Report Type: 
  Country: None (occurrence: None)
  Receive Date: 20090626
  Receipt Date: 20090622
  Transmission Date: 20091009
  Serious: No
  Sender: FDA-Public Use
  Company Number: US-B.I. PHARMACEUTICALS,INC./RIDGEFIELD-2009-BP-07642BP

PATIENT
  Sex: Male

DRUGS (4)
  1. COMBIVENT [Suspect]
     Indication: EMPHYSEMA
     Dosage: 8 PUF
     Route: 055
     Dates: start: 20040101, end: 20090613
  2. OXYGEN [Concomitant]
     Indication: EMPHYSEMA
     Route: 055
  3. ASPIRIN [Concomitant]
  4. ASCORBIC ACID [Concomitant]

REACTIONS (3)
  - CARDIOMEGALY [None]
  - DRUG INEFFECTIVE [None]
  - HYPERTENSION [None]
